FAERS Safety Report 11853993 (Version 1)
Quarter: 2015Q4

REPORT INFORMATION
  Report Type: Spontaneous
  Country: US (occurrence: US)
  Receive Date: 20151219
  Receipt Date: 20151219
  Transmission Date: 20160305
  Serious: No
  Sender: FDA-Public Use
  Company Number: US-009507513-1512USA008449

PATIENT
  Sex: Female

DRUGS (1)
  1. BELSOMRA [Suspect]
     Active Substance: SUVOREXANT
     Dosage: THE PATIENT WAS ^TITRATED TO THE 20 MG DOSE OF BELSOMRA^ FOR ^TWO WEEKS^
     Route: 048

REACTIONS (1)
  - Drug ineffective [Unknown]
